FAERS Safety Report 10233715 (Version 2)
Quarter: 2014Q4

REPORT INFORMATION
  Report Type: Spontaneous
  Country: IT (occurrence: IT)
  Receive Date: 20140612
  Receipt Date: 20141128
  Transmission Date: 20150528
  Serious: Yes (Hospitalization)
  Sender: FDA-Public Use
  Company Number: IT-ASTRAZENECA-2014SE39518

PATIENT
  Age: 28163 Day
  Sex: Female

DRUGS (5)
  1. FOSAVANCE [Interacting]
     Active Substance: ALENDRONATE SODIUM\CHOLECALCIFEROL
     Indication: OSTEOPOROSIS
     Dosage: 70 MG/70 MCG
     Route: 048
  2. PLENDIL [Suspect]
     Active Substance: FELODIPINE
     Indication: ESSENTIAL HYPERTENSION
     Route: 048
  3. METFONORM [Concomitant]
     Indication: TYPE 2 DIABETES MELLITUS
     Route: 048
  4. OMEPRAZEN [Concomitant]
     Active Substance: OMEPRAZOLE
     Indication: GASTRITIS
     Route: 048
  5. TRIATEC [Interacting]
     Active Substance: RAMIPRIL
     Indication: ESSENTIAL HYPERTENSION
     Route: 048

REACTIONS (5)
  - Dyspnoea [Unknown]
  - Drug interaction [Unknown]
  - Hyperglycaemia [Unknown]
  - Acute pulmonary oedema [Unknown]
  - Oxygen saturation decreased [Unknown]

NARRATIVE: CASE EVENT DATE: 20140509
